FAERS Safety Report 16329890 (Version 1)
Quarter: 2019Q2

REPORT INFORMATION
  Report Type: Spontaneous
  Country: US (occurrence: US)
  Receive Date: 20190520
  Receipt Date: 20190520
  Transmission Date: 20190711
  Serious: No
  Sender: FDA-Public Use
  Company Number: US-GLAXOSMITHKLINE-US2019AMR085962

PATIENT
  Sex: Female

DRUGS (1)
  1. TRANSDERM SCOP [Suspect]
     Active Substance: SCOPOLAMINE
     Indication: MENIERE^S DISEASE
     Dosage: UNK, PRN
     Dates: end: 201905

REACTIONS (4)
  - Application site rash [Unknown]
  - Application site haemorrhage [Unknown]
  - Product use in unapproved indication [Unknown]
  - Application site pruritus [Unknown]
